FAERS Safety Report 6970914-7 (Version None)
Quarter: 2010Q3

REPORT INFORMATION
  Report Type: 
  Country: None (occurrence: None)
  Receive Date: 20100908
  Receipt Date: 20100831
  Transmission Date: 20110219
  Serious: Yes (Other)
  Sender: FDA-Public Use
  Company Number: BE-PFIZER INC-2010079911

PATIENT
  Age: 51 Year
  Sex: Male
  Weight: 76 kg

DRUGS (7)
  1. CHAMPIX [Suspect]
     Indication: SMOKING CESSATION THERAPY
     Dosage: 1 MG, 2X/DAY
     Route: 048
     Dates: start: 20100218, end: 20100611
  2. FENOGAL [Concomitant]
     Dosage: 267 MG, 1X/DAY
     Route: 048
  3. ASAFLOW [Concomitant]
     Dosage: 80 MG, 1X/DAY
     Route: 048
  4. INDAPAMIDE [Concomitant]
     Dosage: UNK
     Route: 048
  5. METFORMAX [Concomitant]
     Dosage: 850 MG, 3X/DAY
     Route: 048
  6. ZESTRIL [Concomitant]
     Dosage: 20 MG, 1X/DAY
     Route: 048
  7. EZETIMIBE/SIMVASTATIN [Concomitant]
     Dosage: UNK
     Route: 048

REACTIONS (1)
  - DIABETES MELLITUS [None]
